FAERS Safety Report 10582918 (Version 3)
Quarter: 2015Q1

REPORT INFORMATION
  Report Type: Spontaneous
  Country: US (occurrence: US)
  Receive Date: 20141114
  Receipt Date: 20150204
  Transmission Date: 20150720
  Serious: No
  Sender: FDA-Public Use
  Company Number: US-009507513-1410USA011613

PATIENT
  Age: 81 Year
  Sex: Female

DRUGS (2)
  1. PEGINTRON [Suspect]
     Active Substance: PEGINTERFERON ALFA-2B
     Indication: LYMPHOMA CUTIS
     Dosage: 0.25 MICROGRAM, QW, STRENGTH 50/0.5
     Route: 058
     Dates: start: 20140707
  2. PEGINTRON [Suspect]
     Active Substance: PEGINTERFERON ALFA-2B
     Dosage: 1 DF, QW
     Route: 058

REACTIONS (9)
  - Off label use [Unknown]
  - Drug dose omission [Unknown]
  - Product quality issue [Unknown]
  - No adverse event [Unknown]
  - Injection site reaction [Unknown]
  - Drug dose omission [Unknown]
  - Product quality issue [Unknown]
  - Rash macular [Unknown]
  - Drug dose omission [Unknown]

NARRATIVE: CASE EVENT DATE: 20140707
